FAERS Safety Report 15081079 (Version 1)
Quarter: 2018Q2

REPORT INFORMATION
  Report Type: Report from Study
  Country: US (occurrence: US)
  Receive Date: 20180628
  Receipt Date: 20180628
  Transmission Date: 20180711
  Serious: Yes (Death, Hospitalization, Other)
  Sender: FDA-Public Use
  Company Number: US-JAZZ-2018-US-008702

PATIENT
  Age: 11 Year
  Sex: Male

DRUGS (3)
  1. NEOMYCIN. [Concomitant]
     Active Substance: NEOMYCIN
     Indication: VENOOCCLUSIVE DISEASE
  2. URSODE [Concomitant]
     Indication: VENOOCCLUSIVE DISEASE
  3. DEFITELIO [Suspect]
     Active Substance: DEFIBROTIDE SODIUM
     Indication: VENOOCCLUSIVE DISEASE
     Dosage: DOSING DETAILS NOT PROVIDED

REACTIONS (3)
  - Venoocclusive disease [Fatal]
  - Renal failure [Unknown]
  - Interstitial lung disease [Unknown]
